FAERS Safety Report 9311983 (Version 4)
Quarter: 2013Q3

REPORT INFORMATION
  Report Type: Report from Study
  Country: AU (occurrence: AU)
  Receive Date: 20130528
  Receipt Date: 20130710
  Transmission Date: 20140515
  Serious: Yes (Hospitalization, Disabling, Other)
  Sender: FDA-Public Use
  Company Number: PHHY2013AU051903

PATIENT
  Age: 33 Year
  Sex: Male
  Weight: 85 kg

DRUGS (8)
  1. CLOZARIL [Suspect]
     Indication: SCHIZOPHRENIA, PARANOID TYPE
     Dosage: SLOW TITRATIION SCEDULE
     Route: 048
     Dates: start: 20111017
  2. CLOZARIL [Suspect]
     Dosage: 150 MG,(50 MG MANE AND 100 MG NOCTE) DAILY
     Route: 048
     Dates: end: 20111027
  3. CLOZARIL [Suspect]
     Dosage: 150 MG, UNK
     Route: 048
     Dates: start: 20111028, end: 20111102
  4. CLOZARIL [Suspect]
     Dosage: UNK
     Dates: start: 20130704, end: 20130705
  5. AMISULPRIDE [Concomitant]
     Dosage: 1200 MG, (NIGHT)
  6. CITALOPRAM [Concomitant]
     Dosage: UNK DAILY
     Route: 048
  7. QUETIAPINE [Concomitant]
     Dosage: 300 MG, NOCTE
  8. VENLAFAXIN [Concomitant]
     Dosage: 225 MG, DAILY

REACTIONS (12)
  - Staphylococcal infection [Unknown]
  - Myocarditis [Recovered/Resolved]
  - Sinus tachycardia [Unknown]
  - Malaise [Recovered/Resolved]
  - Blood creatine phosphokinase increased [Unknown]
  - Troponin increased [Recovered/Resolved]
  - Chest pain [Unknown]
  - Pyrexia [Unknown]
  - C-reactive protein increased [Unknown]
  - Nausea [Recovered/Resolved]
  - Headache [Recovered/Resolved]
  - Hallucination, auditory [Unknown]
